FAERS Safety Report 8906204 (Version 2)
Quarter: 2013Q1

REPORT INFORMATION
  Report Type: Spontaneous
  Country: US (occurrence: None)
  Receive Date: 20121106
  Receipt Date: 20130328
  Transmission Date: 20140127
  Serious: Yes (Other)
  Sender: FDA-Public Use
  Company Number: HA12-316-AE

PATIENT
  Age: 56 Year
  Sex: Female
  Weight: 54.43 kg

DRUGS (2)
  1. ALPRAZOLAM [Suspect]
     Indication: DEPRESSION
     Dosage: 1 TABLET AT NIGHT, ORAL
     Route: 048
     Dates: end: 201210
  2. ALPRAZOLAM [Concomitant]

REACTIONS (12)
  - Decreased appetite [None]
  - Constipation [None]
  - Gastrooesophageal reflux disease [None]
  - Vomiting [None]
  - Weight decreased [None]
  - Headache [None]
  - Sleep disorder [None]
  - Depression [None]
  - Suicidal ideation [None]
  - Dizziness [None]
  - Product substitution issue [None]
  - Product quality issue [None]
